FAERS Safety Report 13759244 (Version 1)
Quarter: 2017Q3

REPORT INFORMATION
  Report Type: Spontaneous
  Country: US (occurrence: US)
  Receive Date: 20170717
  Receipt Date: 20170717
  Transmission Date: 20171127
  Serious: Yes (Death)
  Sender: FDA-Public Use
  Company Number: None

PATIENT
  Age: 65 Year
  Sex: Male

DRUGS (15)
  1. STELARA [Suspect]
     Active Substance: USTEKINUMAB
     Indication: PSORIASIS
     Dosage: ?          OTHER DOSE:MG;OTHER FREQUENCY:EVERY 12 WEEKS;?
     Route: 058
  2. LANTUS SOLOSTAR [Concomitant]
     Active Substance: INSULIN GLARGINE
  3. XIFAXAN [Concomitant]
     Active Substance: RIFAXIMIN
  4. HYDROXYZINE HCL [Concomitant]
     Active Substance: HYDROXYZINE HYDROCHLORIDE
  5. TAMSULULOSIN HCL [Concomitant]
  6. NOVOLOG [Concomitant]
     Active Substance: INSULIN ASPART
  7. PANTOPRAZOLE SODIUM. [Concomitant]
     Active Substance: PANTOPRAZOLE SODIUM
  8. FUROSEMIDE. [Concomitant]
     Active Substance: FUROSEMIDE
  9. PRAMOSONE [Concomitant]
     Active Substance: HYDROCORTISONE ACETATE\PRAMOXINE HYDROCHLORIDE
  10. CHOLEXTRA [Concomitant]
  11. ZINC SILFATE [Concomitant]
  12. PROCTOFOAM [Concomitant]
     Active Substance: PRAMOXINE HYDROCHLORIDE
  13. VITAMIN B COMPLEX [Concomitant]
     Active Substance: CYANOCOBALAMIN\DEXPANTHENOL\NIACINAMIDE\PYRIDOXINE HYDROCHLORIDE\RIBOFLAVIN 5^-PHOSPHATE SODIUM\THIAMINE HYDROCHLORIDE\VITAMIN B COMPLEX
  14. SPIRONOLACTONE. [Concomitant]
     Active Substance: SPIRONOLACTONE
  15. OXYCONTIN [Concomitant]
     Active Substance: OXYCODONE HYDROCHLORIDE

REACTIONS (1)
  - Death [None]
